FAERS Safety Report 19635038 (Version 1)
Quarter: 2021Q3

REPORT INFORMATION
  Report Type: Spontaneous
  Country: CN (occurrence: CN)
  Receive Date: 20210730
  Receipt Date: 20210730
  Transmission Date: 20211014
  Serious: Yes (Other)
  Sender: FDA-Public Use
  Company Number: CN-PFIZER INC-202100919582

PATIENT
  Age: 56 Year
  Sex: Female

DRUGS (2)
  1. PACLITAXEL. [Suspect]
     Active Substance: PACLITAXEL
     Dosage: 300 MG
  2. PIRARUBICIN [Concomitant]
     Active Substance: PIRARUBICIN
     Dosage: 70 MG

REACTIONS (1)
  - Interstitial lung disease [Unknown]
